FAERS Safety Report 5008456-0 (Version None)
Quarter: 2006Q2

REPORT INFORMATION
  Report Type: 
  Country: None (occurrence: None)
  Receive Date: 20060522
  Receipt Date: 20060522
  Transmission Date: 20061013
  Serious: Yes (Hospitalization)
  Sender: FDA-Public Use
  Company Number: None

PATIENT
  Sex: Female
  Weight: 55 kg

DRUGS (7)
  1. CELECOXIB [Suspect]
     Indication: PANCREATIC CARCINOMA
     Dosage: 200 MG BID PO
     Route: 048
     Dates: start: 20060508, end: 20060516
  2. IRINOTECAN [Suspect]
     Indication: PANCREATIC CARCINOMA
     Dosage: 50 MG /M2 WEEKLY X 4 IV
     Route: 042
     Dates: start: 20060512
  3. RT 50.4 IGY [Suspect]
  4. OXYCONTIN [Concomitant]
  5. SENOKOT [Concomitant]
  6. ZIAC [Concomitant]
  7. ZETIA [Concomitant]

REACTIONS (2)
  - NAUSEA [None]
  - VOMITING [None]
